FAERS Safety Report 19990509 (Version 1)
Quarter: 2021Q4

REPORT INFORMATION
  Report Type: Spontaneous
  Country: TR (occurrence: TR)
  Receive Date: 20211025
  Receipt Date: 20211025
  Transmission Date: 20220303
  Serious: Yes (Death, Hospitalization, Other)
  Sender: FDA-Public Use
  Company Number: TR-SUN PHARMACEUTICAL INDUSTRIES LTD-2021R1-309248

PATIENT
  Age: 29 Month
  Sex: Female

DRUGS (1)
  1. FLECAINIDE [Suspect]
     Active Substance: FLECAINIDE
     Indication: Product used for unknown indication
     Dosage: 9 DOSAGE FORM
     Route: 065

REACTIONS (6)
  - Toxicity to various agents [Fatal]
  - Overdose [Fatal]
  - Ventricular arrhythmia [Fatal]
  - Loss of consciousness [Fatal]
  - Haemodynamic instability [Fatal]
  - Syncope [Fatal]
